FAERS Safety Report 4540719-5 (Version None)
Quarter: 2005Q1

REPORT INFORMATION
  Report Type: 
  Country: None (occurrence: None)
  Receive Date: 20041223
  Receipt Date: 20040914
  Transmission Date: 20050727
  Serious: No
  Sender: FDA-Public Use
  Company Number: US-JNJFOC-20040904838

PATIENT
  Sex: Female

DRUGS (2)
  1. ORTHO EVRA [Suspect]
     Indication: PELVIC PAIN
     Dosage: 1 DOSE(S), 6 IN 7 WEEK, TRANSDERMAL
     Route: 062
  2. BIRTH CONTROL PILL (CONTRACEPTIVE NOS) [Concomitant]

REACTIONS (1)
  - PAIN [None]
